FAERS Safety Report 14535053 (Version 10)
Quarter: 2020Q2

REPORT INFORMATION
  Report Type: Other
  Country: DE (occurrence: DE)
  Receive Date: 20180215
  Receipt Date: 20200427
  Transmission Date: 20200713
  Serious: Yes (Hospitalization, Other)
  Sender: FDA-Public Use
  Company Number: DE-LUPIN PHARMACEUTICALS INC.-2015-04678

PATIENT
  Age: 75 Year
  Sex: Male
  Weight: 81 kg

DRUGS (29)
  1. PANTOPRAZOLE [Concomitant]
     Active Substance: PANTOPRAZOLE
     Indication: PRODUCT USED FOR UNKNOWN INDICATION
     Dosage: UNK
     Route: 065
  2. ESCITALOPRAM [Concomitant]
     Active Substance: ESCITALOPRAM OXALATE
     Dosage: 5 DROP, UNK
     Route: 048
  3. AMLODIPINE [Concomitant]
     Active Substance: AMLODIPINE BESYLATE
     Indication: PRODUCT USED FOR UNKNOWN INDICATION
     Dosage: 2.5 MILLIGRAM, QD
     Route: 065
  4. TOCILIZUMAB. [Suspect]
     Active Substance: TOCILIZUMAB
     Dosage: 162 MG, EVERY 14 DAYS
     Route: 058
     Dates: start: 201704, end: 20171025
  5. TOCILIZUMAB. [Suspect]
     Active Substance: TOCILIZUMAB
     Dosage: 162 MILLIGRAM EVERY 9 DAY
     Route: 058
     Dates: start: 20190328, end: 20190404
  6. TOCILIZUMAB. [Suspect]
     Active Substance: TOCILIZUMAB
     Indication: VASCULITIS
     Dosage: 162 MG, BID
     Route: 058
  7. TOCILIZUMAB. [Suspect]
     Active Substance: TOCILIZUMAB
     Dosage: 162 MILLIGRAM EVERY 12 DAY
     Route: 058
     Dates: start: 201904
  8. FRAXIPARIN [Suspect]
     Active Substance: NADROPARIN CALCIUM
     Indication: VENOUS THROMBOSIS LIMB
     Dosage: UNK
     Route: 065
     Dates: start: 201507
  9. ESCITALOPRAM [Concomitant]
     Active Substance: ESCITALOPRAM OXALATE
     Dosage: 8 DROP, UNK
     Route: 048
  10. LISIHEXAL [Concomitant]
     Active Substance: LISINOPRIL
     Indication: PRODUCT USED FOR UNKNOWN INDICATION
     Dosage: 20 MG, UNK
     Route: 065
  11. TOCILIZUMAB. [Suspect]
     Active Substance: TOCILIZUMAB
     Indication: RHEUMATOID ARTHRITIS
     Dosage: 162 MG, BID
     Route: 058
     Dates: start: 20150706
  12. TOCILIZUMAB. [Suspect]
     Active Substance: TOCILIZUMAB
     Dosage: 162 UNK, (EVERY 14 DAYS)
     Route: 058
     Dates: start: 20180414
  13. TOCILIZUMAB. [Suspect]
     Active Substance: TOCILIZUMAB
     Dosage: 162 MILLIGRAM EVERY 7 DAY
     Route: 058
     Dates: start: 20190227, end: 20190327
  14. NADROPARINE [Suspect]
     Active Substance: NADROPARIN
     Indication: VENOUS THROMBOSIS LIMB
     Dosage: UNK
     Route: 065
  15. CORTISONE ACETATE. [Concomitant]
     Active Substance: CORTISONE ACETATE
     Indication: PRODUCT USED FOR UNKNOWN INDICATION
     Dosage: 10 MG, UNK
     Route: 065
  16. TOCILIZUMAB. [Suspect]
     Active Substance: TOCILIZUMAB
     Dosage: 162 MG, EVERY 10 DAYS
     Route: 058
     Dates: start: 20180414
  17. TOCILIZUMAB. [Suspect]
     Active Substance: TOCILIZUMAB
     Dosage: 162 MG, BID
     Route: 058
     Dates: start: 20180131
  18. TOCILIZUMAB. [Suspect]
     Active Substance: TOCILIZUMAB
     Dosage: 162 MG, UNK (EVERY 3 WEEK)
     Route: 058
     Dates: start: 201811
  19. TOCILIZUMAB. [Suspect]
     Active Substance: TOCILIZUMAB
     Indication: PRODUCT USED FOR UNKNOWN INDICATION
     Dosage: 162 MG, EVERY 14 DAYS
     Route: 058
  20. ESCITALOPRAM [Concomitant]
     Active Substance: ESCITALOPRAM OXALATE
     Indication: PRODUCT USED FOR UNKNOWN INDICATION
     Dosage: 10 DROP, UNK
     Route: 048
  21. AMLODIPINE [Concomitant]
     Active Substance: AMLODIPINE BESYLATE
     Dosage: 5 MILLIGRAM, QD
     Route: 065
  22. QUETIAPINE. [Suspect]
     Active Substance: QUETIAPINE
     Indication: PRODUCT USED FOR UNKNOWN INDICATION
     Dosage: 25 MG, QD
     Route: 065
  23. CLEXANE [Suspect]
     Active Substance: ENOXAPARIN SODIUM
     Indication: VENOUS THROMBOSIS LIMB
     Dosage: UNK
     Route: 065
     Dates: start: 201507
  24. TOCILIZUMAB. [Suspect]
     Active Substance: TOCILIZUMAB
     Indication: MYALGIA
     Dosage: 162 MG, EVERY WEEK
     Route: 058
     Dates: start: 20140601, end: 201506
  25. TOCILIZUMAB. [Suspect]
     Active Substance: TOCILIZUMAB
     Indication: MYALGIA
     Dosage: 162 MG, EVERY 12 DAYS
     Route: 058
  26. TOCILIZUMAB. [Suspect]
     Active Substance: TOCILIZUMAB
     Dosage: 162 MG, EVERY 14 DAYS
     Route: 058
  27. TOCILIZUMAB. [Suspect]
     Active Substance: TOCILIZUMAB
     Dosage: 324 MG, (EVERY 12 DAYS)
     Route: 058
     Dates: start: 20150706, end: 20171025
  28. COLECALCIFEROL [Suspect]
     Active Substance: CHOLECALCIFEROL
     Indication: OSTEOPOROSIS
     Dosage: 1000 IU, UNK
     Route: 048
     Dates: start: 201204
  29. PROLIA [Suspect]
     Active Substance: DENOSUMAB
     Indication: OSTEOPOROSIS
     Dosage: 60 MG, (EVERY 6 MONTHS)
     Route: 058
     Dates: start: 201405

REACTIONS (27)
  - Erysipelas [Recovering/Resolving]
  - Fall [Unknown]
  - Leukopenia [Recovered/Resolved]
  - Sleep disorder [Unknown]
  - Sepsis [Recovering/Resolving]
  - Platelet count decreased [Unknown]
  - Soft tissue disorder [Recovered/Resolved]
  - Autoimmune disorder [Unknown]
  - Lymphocele [Recovered/Resolved]
  - Venous thrombosis limb [Not Recovered/Not Resolved]
  - Bronchitis [Recovered/Resolved]
  - Dysuria [Unknown]
  - C-reactive protein increased [Recovering/Resolving]
  - Eye inflammation [Recovering/Resolving]
  - Depression [Not Recovered/Not Resolved]
  - Lymphoedema [Recovered/Resolved]
  - Wound dehiscence [Recovered/Resolved]
  - Acetabulum fracture [Recovering/Resolving]
  - Prostate cancer [Recovered/Resolved]
  - Rash erythematous [Unknown]
  - Hyperaesthesia [Unknown]
  - Inappropriate schedule of product administration [Unknown]
  - Off label use [Unknown]
  - Product use in unapproved indication [Unknown]
  - Suture rupture [Recovered/Resolved]
  - Impaired healing [Recovered/Resolved]
  - Angioedema [Recovered/Resolved]

NARRATIVE: CASE EVENT DATE: 201407
